FAERS Safety Report 6259928-2 (Version None)
Quarter: 2009Q3

REPORT INFORMATION
  Report Type: 
  Country: None (occurrence: None)
  Receive Date: 20090706
  Receipt Date: 20090706
  Transmission Date: 20100115
  Serious: Yes (Hospitalization)
  Sender: FDA-Public Use
  Company Number: None

PATIENT
  Sex: Male
  Weight: 84.369 kg

DRUGS (2)
  1. HALOPERIDOL DECANOATE [Suspect]
     Indication: SCHIZOPHRENIA
     Dosage: 250 MG Q 4 WEEKS IM
     Route: 030
     Dates: start: 20030101, end: 20090704
  2. HALOPERIDOL DECANOATE [Suspect]
     Indication: SCHIZOPHRENIA, PARANOID TYPE
     Dosage: 250 MG Q 4 WEEKS IM
     Route: 030
     Dates: start: 20030101, end: 20090704

REACTIONS (1)
  - CELLULITIS [None]
